FAERS Safety Report 19672888 (Version 2)
Quarter: 2021Q4

REPORT INFORMATION
  Report Type: Report from Study
  Country: NL (occurrence: NL)
  Receive Date: 20210809
  Receipt Date: 20211203
  Transmission Date: 20220303
  Serious: Yes (Death, Other)
  Sender: FDA-Public Use
  Company Number: NL-NOVARTISPH-NVSC2021NL173577

PATIENT
  Age: 69 Year
  Sex: Male

DRUGS (5)
  1. RYDAPT [Suspect]
     Active Substance: MIDOSTAURIN
     Indication: Acute myeloid leukaemia
     Dosage: 100 MG
     Route: 065
     Dates: start: 20210628, end: 20210712
  2. DAUNORUBICIN [Suspect]
     Active Substance: DAUNORUBICIN
     Indication: Product used for unknown indication
     Dosage: 60 MG/M2
     Route: 065
     Dates: start: 20210621, end: 20210623
  3. CYTARABINE [Suspect]
     Active Substance: CYTARABINE
     Indication: Acute myeloid leukaemia
     Dosage: 200 MG/M2
     Route: 065
     Dates: start: 20210621, end: 20210627
  4. LEVODOPA [Concomitant]
     Active Substance: LEVODOPA
     Indication: Parkinson^s disease
     Dosage: UNK
     Route: 065
  5. CARBIDOPA [Concomitant]
     Active Substance: CARBIDOPA
     Indication: Parkinson^s disease
     Dosage: UNK
     Route: 065

REACTIONS (13)
  - Catabolic state [Fatal]
  - Multiple organ dysfunction syndrome [Fatal]
  - Cachexia [Unknown]
  - Febrile neutropenia [Unknown]
  - Muscle atrophy [Unknown]
  - Fungal infection [Unknown]
  - Vomiting [Unknown]
  - Oedema [Unknown]
  - Toxicity to various agents [Unknown]
  - General physical health deterioration [Unknown]
  - Asthenia [Unknown]
  - Back pain [Unknown]
  - Diarrhoea [Unknown]

NARRATIVE: CASE EVENT DATE: 20210628
